FAERS Safety Report 8248733-3 (Version None)
Quarter: 2012Q1

REPORT INFORMATION
  Report Type: 
  Country: None (occurrence: None)
  Receive Date: 20120331
  Receipt Date: 20120327
  Transmission Date: 20120608
  Serious: Yes (Disabling, Other)
  Sender: FDA-Public Use
  Company Number: PHHY2011BE105545

PATIENT
  Sex: Female
  Weight: 45 kg

DRUGS (4)
  1. ZOLEDRONOC ACID [Suspect]
     Indication: OSTEOPOROSIS
     Dosage: 5 MG, UNK
     Route: 042
     Dates: start: 20100101
  2. ZOLEDRONOC ACID [Suspect]
     Dosage: 5 MG, UNK
     Route: 042
     Dates: start: 20110601
  3. CALCIUM CARBONATE [Concomitant]
     Dosage: UNK UKN, UNK
  4. VITAMIN D [Concomitant]
     Dosage: UNK UKN, UNK

REACTIONS (8)
  - MUSCULAR WEAKNESS [None]
  - GAIT DISTURBANCE [None]
  - PSYCHOMOTOR SKILLS IMPAIRED [None]
  - SENSORY DISTURBANCE [None]
  - PAIN [None]
  - FATIGUE [None]
  - ASTHENIA [None]
  - PAIN IN EXTREMITY [None]
